FAERS Safety Report 13852636 (Version 1)
Quarter: 2017Q3

REPORT INFORMATION
  Report Type: Spontaneous
  Country: US (occurrence: US)
  Receive Date: 20170809
  Receipt Date: 20170809
  Transmission Date: 20171127
  Serious: No
  Sender: FDA-Public Use
  Company Number: US-ROCHE-640342

PATIENT
  Age: 64 Year
  Sex: Female

DRUGS (1)
  1. BONIVA [Suspect]
     Active Substance: IBANDRONATE SODIUM
     Indication: OSTEOPOROSIS
     Dosage: FROM: INJECTION
     Route: 065

REACTIONS (4)
  - Contusion [Unknown]
  - Hypertension [Unknown]
  - Influenza like illness [Unknown]
  - Fatigue [Unknown]
